FAERS Safety Report 5549818-2 (Version None)
Quarter: 2007Q4

REPORT INFORMATION
  Report Type: 
  Country: None (occurrence: None)
  Receive Date: 20071207
  Receipt Date: 20071207
  Transmission Date: 20080405
  Serious: Yes (Hospitalization)
  Sender: FDA-Public Use
  Company Number: None

PATIENT
  Age: 49 Year
  Sex: Male
  Weight: 115 kg

DRUGS (1)
  1. LOVENOX [Suspect]
     Dosage: 100MG  EVERY 12 HOURS  SQ
     Route: 058

REACTIONS (6)
  - DIZZINESS [None]
  - HAEMATEMESIS [None]
  - HAEMORRHAGE [None]
  - NAUSEA [None]
  - VERTIGO [None]
  - VOMITING [None]
